FAERS Safety Report 11117108 (Version 1)
Quarter: 2015Q2

REPORT INFORMATION
  Report Type: Spontaneous
  Country: US (occurrence: US)
  Receive Date: 20150515
  Receipt Date: 20150515
  Transmission Date: 20150821
  Serious: No
  Sender: FDA-Public Use
  Company Number: US-PFIZER INC-2015160147

PATIENT
  Age: 27 Month
  Sex: Male

DRUGS (4)
  1. CHILDRENS ADVIL [Suspect]
     Active Substance: IBUPROFEN
     Dosage: UNK
  2. HYLAND^S BABY COLD SYRUP [Suspect]
     Active Substance: HOMEOPATHICS
     Indication: RHINORRHOEA
  3. HYLAND^S BABY COLD SYRUP [Suspect]
     Active Substance: HOMEOPATHICS
     Indication: COUGH
     Dosage: UNK
  4. HYLAND^S BABY COLD SYRUP [Suspect]
     Active Substance: HOMEOPATHICS
     Indication: NASOPHARYNGITIS

REACTIONS (1)
  - Somnolence [Unknown]
